FAERS Safety Report 21858245 (Version 2)
Quarter: 2023Q1

REPORT INFORMATION
  Report Type: Spontaneous
  Country: US (occurrence: US)
  Receive Date: 20230113
  Receipt Date: 20230119
  Transmission Date: 20230418
  Serious: Yes (Hospitalization)
  Sender: FDA-Public Use
  Company Number: US-002147023-NVSC2023US007376

PATIENT
  Age: 57 Year
  Sex: Male

DRUGS (2)
  1. MEKINIST [Suspect]
     Active Substance: TRAMETINIB DIMETHYL SULFOXIDE
     Indication: Metastases to central nervous system
     Dosage: 2 MG, QD
     Route: 048
     Dates: start: 202211, end: 20221220
  2. TAFINLAR [Suspect]
     Active Substance: DABRAFENIB MESYLATE
     Indication: Metastases to central nervous system
     Dosage: 150 MG, Q12H
     Route: 048
     Dates: start: 202211, end: 20221220

REACTIONS (3)
  - Localised infection [Unknown]
  - Visual impairment [Unknown]
  - Product use in unapproved indication [Unknown]

NARRATIVE: CASE EVENT DATE: 20221220
